FAERS Safety Report 20851260 (Version 2)
Quarter: 2022Q2

REPORT INFORMATION
  Report Type: Spontaneous
  Country: GR (occurrence: DE)
  Receive Date: 20220519
  Receipt Date: 20220603
  Transmission Date: 20220720
  Serious: Yes (Death, Hospitalization, Other)
  Sender: FDA-Public Use
  Company Number: GR-GILEAD-2022-0582119

PATIENT
  Sex: Male

DRUGS (3)
  1. TECARTUS [Suspect]
     Active Substance: BREXUCABTAGENE AUTOLEUCEL
     Indication: Lymphoma
     Dosage: UNK
     Route: 042
     Dates: start: 20210303, end: 20210303
  2. FLUDARABINE [Concomitant]
     Active Substance: FLUDARABINE PHOSPHATE
     Indication: Bone marrow conditioning regimen
     Dosage: UNK
     Dates: start: 20210226, end: 20210228
  3. CYCLOPHOSPHAMIDE [Concomitant]
     Active Substance: CYCLOPHOSPHAMIDE
     Indication: Bone marrow conditioning regimen
     Dosage: UNK
     Dates: start: 20210226, end: 20210228

REACTIONS (11)
  - COVID-19 pneumonia [Fatal]
  - Cytokine release syndrome [Unknown]
  - Immune effector cell-associated neurotoxicity syndrome [Unknown]
  - Neutropenia [Unknown]
  - Cardiopulmonary failure [Unknown]
  - Septic shock [Unknown]
  - Therapy partial responder [Not Recovered/Not Resolved]
  - Thrombocytopenia [Unknown]
  - Gastrointestinal infection [Unknown]
  - Pneumonia [Unknown]
  - Hypoglobulinaemia [Unknown]

NARRATIVE: CASE EVENT DATE: 20210301
